FAERS Safety Report 24602581 (Version 1)
Quarter: 2024Q4

REPORT INFORMATION
  Report Type: Spontaneous
  Country: US (occurrence: US)
  Receive Date: 20241111
  Receipt Date: 20241111
  Transmission Date: 20250115
  Serious: Yes (Hospitalization, Other)
  Sender: GERON CORP
  Company Number: US-GERON-INTAKE-US-2007-2024

PATIENT

DRUGS (1)
  1. RYTELO [Suspect]
     Active Substance: IMETELSTAT SODIUM
     Indication: Myelodysplastic syndrome
     Dosage: UNK, UNK
     Route: 065
     Dates: start: 2024, end: 2024

REACTIONS (4)
  - Limb injury [Not Recovered/Not Resolved]
  - Sepsis [Unknown]
  - Thrombocytopenia [Recovered/Resolved]
  - Neutropenia [Recovered/Resolved]

NARRATIVE: CASE EVENT DATE: 20240101
